FAERS Safety Report 18108331 (Version 3)
Quarter: 2020Q4

REPORT INFORMATION
  Report Type: Spontaneous
  Country: US (occurrence: US)
  Receive Date: 20200804
  Receipt Date: 20201013
  Transmission Date: 20210113
  Serious: Yes (Other)
  Sender: FDA-Public Use
  Company Number: US-SEPTODONT-202005845

PATIENT
  Age: 50 Year
  Sex: Male

DRUGS (1)
  1. LIDOCAINE 2 % WITH EPINEPHRINE [Suspect]
     Active Substance: EPINEPHRINE BITARTRATE\LIDOCAINE HYDROCHLORIDE
     Indication: DENTAL LOCAL ANAESTHESIA
     Dosage: ONE CARPULE AND A HALF??LOWER BLOCK CAVITY PROCEDURE
     Dates: start: 20200728

REACTIONS (3)
  - Sensory loss [Unknown]
  - Toxicity to various agents [Unknown]
  - Vomiting [Unknown]

NARRATIVE: CASE EVENT DATE: 20200728
